FAERS Safety Report 5471311-6 (Version None)
Quarter: 2007Q3

REPORT INFORMATION
  Report Type: 
  Country: None (occurrence: None)
  Receive Date: 20070928
  Receipt Date: 20070918
  Transmission Date: 20080115
  Serious: Yes (Other)
  Sender: FDA-Public Use
  Company Number: US-PFIZER INC-2007078169

PATIENT
  Sex: Female
  Weight: 90.7 kg

DRUGS (2)
  1. XALATAN [Suspect]
     Indication: INTRAOCULAR PRESSURE INCREASED
  2. ZESTORETIC [Concomitant]

REACTIONS (3)
  - DYSPEPSIA [None]
  - ERYTHEMA OF EYELID [None]
  - GASTRIC ULCER [None]
